FAERS Safety Report 6384082-6 (Version None)
Quarter: 2009Q3

REPORT INFORMATION
  Report Type: 
  Country: None (occurrence: None)
  Receive Date: 20090928
  Receipt Date: 20090905
  Transmission Date: 20100115
  Serious: Yes (Hospitalization, Other)
  Sender: FDA-Public Use
  Company Number: 230201K09BRA

PATIENT
  Sex: Female

DRUGS (1)
  1. REBIF [Suspect]
     Indication: RELAPSING-REMITTING MULTIPLE SCLEROSIS
     Dosage: 44 MCG, 3 IN 1 WEEK
     Dates: start: 20081229, end: 20090425

REACTIONS (7)
  - BILIARY COLIC [None]
  - CHOLELITHIASIS [None]
  - DRUG EXPOSURE DURING PREGNANCY [None]
  - HEPATIC ENZYME ABNORMAL [None]
  - NAUSEA [None]
  - URINARY TRACT INFECTION [None]
  - VOMITING [None]
